FAERS Safety Report 20638869 (Version 6)
Quarter: 2022Q3

REPORT INFORMATION
  Report Type: Report from Study
  Country: DE (occurrence: DE)
  Receive Date: 20220325
  Receipt Date: 20220921
  Transmission Date: 20221026
  Serious: Yes (Hospitalization)
  Sender: FDA-Public Use
  Company Number: DE-BRISTOL-MYERS SQUIBB COMPANY-2022-010508

PATIENT
  Age: 63 Year
  Sex: Male
  Weight: 107 kg

DRUGS (12)
  1. PLACEBO [Suspect]
     Active Substance: UNSPECIFIED INGREDIENT
     Indication: Hormone-refractory prostate cancer
     Dosage: PRIOR TO THE EVENT ONSET, PATIENT RECEIVED HIS MOST RECENT DOSE OF BLINDED NIVOLUMAB/PLACEBO ON 28-F
     Route: 042
     Dates: start: 20211227, end: 20220330
  2. DOCETAXEL [Suspect]
     Active Substance: DOCETAXEL
     Indication: Hormone-refractory prostate cancer
     Dosage: PRIOR TO THE EVENT ONSET, PATIENT RECEIVED HIS MOST RECENT DOSE OF DOCETAXEL (171 MG) ON 28-FEB-2022
     Route: 042
     Dates: start: 20211227
  3. DOCETAXEL [Suspect]
     Active Substance: DOCETAXEL
     Route: 042
     Dates: start: 20220228, end: 20220228
  4. RAMIPRIL [Concomitant]
     Active Substance: RAMIPRIL
     Indication: Product used for unknown indication
     Route: 048
     Dates: start: 20220228, end: 20220322
  5. PANTOPRAZOLE [Concomitant]
     Active Substance: PANTOPRAZOLE
     Indication: Product used for unknown indication
     Dosage: ONGOING
     Route: 048
     Dates: start: 201807
  6. FURADANTIN [Concomitant]
     Active Substance: NITROFURANTOIN
     Indication: Prophylaxis
     Dosage: ONGOING
     Route: 048
     Dates: start: 202108
  7. COMIRNATY [Concomitant]
     Active Substance: TOZINAMERAN
     Indication: Prophylaxis
     Route: 030
     Dates: start: 20210729
  8. COMIRNATY [Concomitant]
     Active Substance: TOZINAMERAN
     Route: 030
     Dates: start: 20210907
  9. METAMIZOLE [Concomitant]
     Active Substance: METAMIZOLE
     Indication: Product used for unknown indication
     Dosage: ONGOING
     Route: 048
     Dates: start: 202111
  10. PREDNISONE [Concomitant]
     Active Substance: PREDNISONE
     Indication: Hormone-refractory prostate cancer
     Dosage: PRIOR TO THE EVENT ONSET, PATIENT RECEIVED HIS MOST RECENT DOSE OF PREDNISONE ON 28-FEB-2022.?ON 30-
     Route: 048
     Dates: start: 20211227, end: 20220330
  11. ENOXAPARIN SODIUM [Concomitant]
     Active Substance: ENOXAPARIN SODIUM
     Indication: Product used for unknown indication
     Dosage: 1DF= 10000 UNITS NOS?ONGOING
     Route: 058
     Dates: start: 20220228
  12. ZOMETA [Concomitant]
     Active Substance: ZOLEDRONIC ACID
     Indication: Product used for unknown indication
     Dosage: ONGOING
     Route: 058
     Dates: start: 201910

REACTIONS (1)
  - Skin ulcer [Recovered/Resolved]

NARRATIVE: CASE EVENT DATE: 20220317
